FAERS Safety Report 4628830-1 (Version None)
Quarter: 2005Q2

REPORT INFORMATION
  Report Type: 
  Country: None (occurrence: None)
  Receive Date: 20050406
  Receipt Date: 20050322
  Transmission Date: 20051028
  Serious: Yes (Other)
  Sender: FDA-Public Use
  Company Number: 212102

PATIENT
  Age: 51 Year
  Sex: Male
  Weight: 100.7 kg

DRUGS (4)
  1. RITUXAN [Suspect]
     Indication: VASCULITIS
     Dosage: 1000 MG, X2; INTRAVENOUS
     Route: 042
     Dates: start: 20041005, end: 20041019
  2. PREVACID [Concomitant]
  3. CELEBREX [Concomitant]
  4. ZYTREC (CETIRIZINE HYDROCHLORIDE) [Concomitant]

REACTIONS (6)
  - ABDOMINAL DISCOMFORT [None]
  - BLOOD ACID PHOSPHATASE INCREASED [None]
  - DRUG TOXICITY [None]
  - HEPATITIS C [None]
  - HEPATITIS C VIRUS [None]
  - INFECTION [None]
